FAERS Safety Report 9953522 (Version 4)
Quarter: 2014Q2

REPORT INFORMATION
  Report Type: Report from Study
  Country: US (occurrence: US)
  Receive Date: 20140304
  Receipt Date: 20140507
  Transmission Date: 20141212
  Serious: Yes (Death, Hospitalization, Other)
  Sender: FDA-Public Use
  Company Number: PHEH2014US004240

PATIENT
  Age: 69 Year
  Sex: Female
  Weight: 49 kg

DRUGS (7)
  1. GILENYA [Suspect]
     Indication: MULTIPLE SCLEROSIS
     Dosage: 0.5 MG, QD
     Route: 048
     Dates: start: 20111107, end: 20131022
  2. THYROID THERAPY [Concomitant]
  3. AMANTADINE [Concomitant]
     Indication: FATIGUE
     Dosage: 100 MG, BID
     Route: 048
     Dates: start: 20081113, end: 20131022
  4. MODAFINIL [Concomitant]
     Indication: FATIGUE
     Dosage: 200 MG, DAILY
     Route: 048
     Dates: start: 20081113, end: 20131022
  5. GABAPENTIN [Concomitant]
     Indication: PAIN
     Dosage: 300 MG, TID
     Route: 048
     Dates: start: 20120222, end: 20131022
  6. DITROPAN [Concomitant]
     Indication: NEUROGENIC BLADDER
     Dosage: 10 MG, DAILY
     Route: 048
     Dates: start: 20091105, end: 20131022
  7. PROZAC [Concomitant]
     Indication: DEPRESSION
     Dosage: 20 MG, DAILY
     Route: 048
     Dates: start: 20120506, end: 20131022

REACTIONS (2)
  - Intestinal obstruction [Fatal]
  - Ovarian mass [Unknown]
